FAERS Safety Report 10463368 (Version 3)
Quarter: 2014Q4

REPORT INFORMATION
  Report Type: Spontaneous
  Country: US (occurrence: US)
  Receive Date: 20140919
  Receipt Date: 20141003
  Transmission Date: 20150528
  Serious: Yes (Other)
  Sender: FDA-Public Use
  Company Number: US-ELI_LILLY_AND_COMPANY-US201408008373

PATIENT
  Age: 70 Year
  Sex: Male

DRUGS (24)
  1. METFORMIN [Concomitant]
     Active Substance: METFORMIN HYDROCHLORIDE
     Dosage: 1000 MG, BID
  2. SLOW RELEASE IRON [Concomitant]
     Dosage: 45 MG, QD
  3. CARBOPLATINE [Concomitant]
     Active Substance: CARBOPLATIN
     Dosage: UNK, UNKNOWN
  4. ALIMTA [Suspect]
     Active Substance: PEMETREXED DISODIUM
     Indication: NON-SMALL CELL LUNG CANCER
     Dosage: UNK, OTHER: EVERY 21 DAYS
     Route: 065
     Dates: start: 20131112
  5. B12                                /00056202/ [Concomitant]
     Dosage: 1000 UG, QD
  6. VITAMIN C [Concomitant]
     Active Substance: ASCORBIC ACID
     Dosage: 500 MG, QD
  7. COATED ASPIRIN [Concomitant]
     Dosage: 325 MG, QOD
  8. FOLIC ACID. [Concomitant]
     Active Substance: FOLIC ACID
     Dosage: 1000 UG, QD
  9. BIOTIN [Concomitant]
     Active Substance: BIOTIN
     Dosage: 2000 UG, QD
  10. METAMUCIL [Concomitant]
     Active Substance: PLANTAGO SEED
  11. SPIRIVA [Concomitant]
     Active Substance: TIOTROPIUM BROMIDE MONOHYDRATE
     Dosage: 18 UG, PRN
  12. NTG [Concomitant]
     Active Substance: NITROGLYCERIN
     Dosage: UNK, UNKNOWN
  13. HYDROCODONE [Concomitant]
     Active Substance: HYDROCODONE
  14. ALIMTA [Suspect]
     Active Substance: PEMETREXED DISODIUM
     Dosage: UNK, EVERY 21 DAYS
     Route: 065
     Dates: start: 20140918
  15. OMEPRAZOLE. [Concomitant]
     Active Substance: OMEPRAZOLE
     Dosage: 40 MG, QD
  16. MELATONIN [Concomitant]
     Active Substance: MELATONIN
     Dosage: 300 UG, QD
  17. ALIMTA [Suspect]
     Active Substance: PEMETREXED DISODIUM
     Dosage: UNK, OTHER: EVERY 21 DAYS
     Route: 065
     Dates: start: 20140206
  18. PROAIR                             /00972202/ [Concomitant]
     Active Substance: FLUTICASONE PROPIONATE
     Dosage: 90 UG, PRN
  19. GLIMEPIRIDE. [Concomitant]
     Active Substance: GLIMEPIRIDE
     Dosage: 2 MG, QD
  20. STOOL SOFTENER [Concomitant]
     Active Substance: DOCUSATE CALCIUM
  21. PRAVASTATIN [Concomitant]
     Active Substance: PRAVASTATIN\PRAVASTATIN SODIUM
     Dosage: 40 MG, QD
  22. MULTIVITAMIN                       /00831701/ [Concomitant]
     Active Substance: VITAMINS
     Dosage: 1 DF, QD
  23. VITAMIN D                          /00107901/ [Concomitant]
     Active Substance: ERGOCALCIFEROL
     Dosage: 1000 IU, QD
  24. NORTRIPTYLINE [Concomitant]
     Active Substance: NORTRIPTYLINE

REACTIONS (3)
  - Nephropathy [Unknown]
  - Blood creatine increased [Not Recovered/Not Resolved]
  - Off label use [Unknown]

NARRATIVE: CASE EVENT DATE: 20140619
